FAERS Safety Report 5190677-8 (Version None)
Quarter: 2006Q4

REPORT INFORMATION
  Report Type: 
  Country: None (occurrence: None)
  Receive Date: 20061222
  Receipt Date: 20061120
  Transmission Date: 20070319
  Serious: Yes (Other)
  Sender: FDA-Public Use
  Company Number: US-BRISTOL-MYERS SQUIBB COMPANY-13584735

PATIENT
  Age: 54 Year
  Sex: Male
  Weight: 75 kg

DRUGS (4)
  1. ORENCIA [Suspect]
     Indication: RHEUMATOID ARTHRITIS
     Route: 042
     Dates: start: 20061114, end: 20061114
  2. LEXAPRO [Concomitant]
  3. OXYCONTIN [Concomitant]
  4. PREDNISONE TAB [Concomitant]

REACTIONS (3)
  - BLOOD PRESSURE INCREASED [None]
  - PRURITUS [None]
  - URTICARIA [None]
